FAERS Safety Report 16023356 (Version 2)
Quarter: 2019Q2

REPORT INFORMATION
  Report Type: Report from Study
  Country: CA (occurrence: CA)
  Receive Date: 20190301
  Receipt Date: 20190502
  Transmission Date: 20190711
  Serious: Yes (Hospitalization)
  Sender: FDA-Public Use
  Company Number: CA-JNJFOC-20190239580

PATIENT
  Age: 69 Year
  Sex: Male
  Weight: 92.08 kg

DRUGS (1)
  1. REMICADE [Suspect]
     Active Substance: INFLIXIMAB
     Indication: HIDRADENITIS
     Dosage: STRENGTH = 100 MG
     Route: 042
     Dates: start: 20180308

REACTIONS (3)
  - Sepsis [Unknown]
  - Histoplasmosis [Not Recovered/Not Resolved]
  - Lung infection [Unknown]

NARRATIVE: CASE EVENT DATE: 20190220
